FAERS Safety Report 7043742-4 (Version None)
Quarter: 2010Q4

REPORT INFORMATION
  Report Type: 
  Country: None (occurrence: None)
  Receive Date: 20101013
  Receipt Date: 20100929
  Transmission Date: 20110411
  Serious: Yes (Hospitalization)
  Sender: FDA-Public Use
  Company Number: DE-GENENTECH-307868

PATIENT
  Age: 75 Year
  Sex: Female

DRUGS (3)
  1. MABTHERA [Suspect]
     Indication: B-CELL LYMPHOMA
     Dosage: UNK
     Route: 065
     Dates: start: 20090604
  2. MABTHERA [Suspect]
     Dosage: UNK
     Route: 065
     Dates: start: 20080901
  3. BENDAMUSTINE [Concomitant]
     Indication: B-CELL LYMPHOMA
     Dosage: UNK
     Dates: start: 20080901

REACTIONS (4)
  - BLOOD PRESSURE INCREASED [None]
  - COORDINATION ABNORMAL [None]
  - DIZZINESS [None]
  - HYPOAESTHESIA [None]
